FAERS Safety Report 6719678-2 (Version None)
Quarter: 2010Q2

REPORT INFORMATION
  Report Type: 
  Country: None (occurrence: None)
  Receive Date: 20100511
  Receipt Date: 20100430
  Transmission Date: 20101027
  Serious: Yes (Other)
  Sender: FDA-Public Use
  Company Number: US-B.I. PHARMACEUTICALS,INC./RIDGEFIELD-2010-DE-02436GD

PATIENT
  Age: 87 Year
  Sex: Male
  Weight: 98.6 kg

DRUGS (14)
  1. DIPYRIDAMOLE [Suspect]
     Indication: CEREBROVASCULAR ACCIDENT PROPHYLAXIS
     Dosage: 400 MG
     Route: 048
  2. OMEPRAZOLE [Suspect]
     Dosage: 40 MG
  3. IPRATROPIUM BROMIDE [Suspect]
     Indication: CHRONIC OBSTRUCTIVE PULMONARY DISEASE
     Dosage: 10 ML
     Route: 055
  4. TRAVOPROST [Suspect]
     Indication: OPEN ANGLE GLAUCOMA
     Dosage: 1 DROP (LEFT EYE)
     Route: 047
  5. NITROGLYCERIN [Suspect]
     Indication: CHEST PAIN
     Dosage: ONE HALF-INCH APPLIED ON THE CHEST EVERY 6 HOURS AS NEEDED
     Route: 061
  6. ALBUTEROL [Suspect]
     Indication: CHRONIC OBSTRUCTIVE PULMONARY DISEASE
     Dosage: 12 ML
     Route: 055
  7. ACETAMINOPHEN [Concomitant]
     Indication: PAIN
     Dosage: 640 MG EVERY 4 HOURS AS NEEDED
     Route: 048
  8. ACETAMINOPHEN [Concomitant]
     Indication: PYREXIA
  9. DORZOLAMIDE [Concomitant]
     Indication: OPEN ANGLE GLAUCOMA
     Dosage: 2 DROPS (LEFT EYE)
     Route: 047
  10. SIMVASTATIN [Concomitant]
     Indication: HYPERLIPIDAEMIA
     Dosage: 80 MG
  11. ASPIRIN [Concomitant]
     Dosage: 324 MG
     Route: 048
  12. ENALAPRIL MALEATE [Concomitant]
     Dosage: 5 MG
  13. ENOXAPARIN SODIUM [Concomitant]
     Indication: THROMBOSIS PROPHYLAXIS
     Dosage: 40 MG
     Route: 058
  14. REGULAR HUMAN INSULIN [Concomitant]
     Indication: DIABETES MELLITUS
     Dosage: DOSING BASED ON SLIDING SCALE WITH FINGER STICK BLOOD GLUCOSE MEASUREMENT

REACTIONS (1)
  - SINUS BRADYCARDIA [None]
